FAERS Safety Report 9680611 (Version 2)
Quarter: 2014Q2

REPORT INFORMATION
  Report Type: Spontaneous
  Country: US (occurrence: US)
  Receive Date: 20131111
  Receipt Date: 20140409
  Transmission Date: 20141212
  Serious: No
  Sender: FDA-Public Use
  Company Number: US-PFIZER INC-2013318261

PATIENT
  Age: 44 Year
  Sex: Male

DRUGS (4)
  1. CELEBREX [Suspect]
     Dosage: UNK
  2. VICODIN [Suspect]
     Dosage: UNK
  3. PERCOCET [Suspect]
     Indication: PAIN
     Dosage: UNK
  4. CODEINE [Suspect]
     Dosage: UNK

REACTIONS (1)
  - Drug hypersensitivity [Unknown]
